FAERS Safety Report 8595116-2 (Version None)
Quarter: 2012Q3

REPORT INFORMATION
  Report Type: 
  Country: None (occurrence: None)
  Receive Date: 20120815
  Receipt Date: 20120805
  Transmission Date: 20120928
  Serious: Yes (Other)
  Sender: FDA-Public Use
  Company Number: GB-BAYER-2012-082261

PATIENT
  Age: 61 Year
  Sex: Female

DRUGS (1)
  1. BETASERON [Suspect]
     Indication: MULTIPLE SCLEROSIS
     Dosage: UNK
     Route: 058
     Dates: start: 20120701, end: 20120805

REACTIONS (5)
  - RASH [None]
  - INFLUENZA LIKE ILLNESS [None]
  - DYSPNOEA [None]
  - LOCAL SWELLING [None]
  - INJECTION SITE REACTION [None]
